FAERS Safety Report 11114737 (Version 1)
Quarter: 2015Q2

REPORT INFORMATION
  Report Type: Spontaneous
  Country: KP (occurrence: None)
  Receive Date: 20150513
  Receipt Date: 20150513
  Transmission Date: 20150821
  Serious: Yes (Other)
  Sender: FDA-Public Use
  Company Number: BD-2015-0323

PATIENT

DRUGS (3)
  1. PETHIDINE (PETHIDINE) [Concomitant]
  2. MIDAZOLAM [Suspect]
     Active Substance: MIDAZOLAM\MIDAZOLAM HYDROCHLORIDE
     Indication: SEDATION
  3. LIDOCAINE (LIDOCAINE) [Concomitant]
     Active Substance: LIDOCAINE

REACTIONS (1)
  - Paradoxical drug reaction [None]
